FAERS Safety Report 9688132 (Version 1)
Quarter: 2013Q4

REPORT INFORMATION
  Report Type: Spontaneous
  Country: IT (occurrence: None)
  Receive Date: 20131112
  Receipt Date: 20131112
  Transmission Date: 20140711
  Serious: Yes (Death)
  Sender: FDA-Public Use
  Company Number: 2013P1020933

PATIENT
  Age: 38 Year
  Sex: Female

DRUGS (7)
  1. ZANTAC [Suspect]
     Indication: NAUSEA
     Route: 042
     Dates: start: 20131003
  2. PROPOFOL [Suspect]
     Indication: ABORTION INDUCED
     Route: 042
     Dates: start: 20131003
  3. FENTANYL [Suspect]
     Indication: ABORTION INDUCED
     Dates: start: 20131003
  4. PLASIL [Suspect]
     Indication: NAUSEA
     Route: 042
     Dates: start: 20131003
  5. TORADOL [Suspect]
     Indication: ABDOMINAL PAIN
     Route: 042
     Dates: start: 20131003
  6. GEMEPROST [Suspect]
     Indication: ABORTION INDUCED
     Dates: start: 20131003
  7. PARACETAMOL [Concomitant]

REACTIONS (8)
  - Vomiting [None]
  - Cardio-respiratory arrest [None]
  - Arrhythmia [None]
  - Abortion induced [None]
  - Nausea [None]
  - Abdominal pain [None]
  - Cardiac arrest [None]
  - Pulmonary embolism [None]
